FAERS Safety Report 22913916 (Version 4)
Quarter: 2023Q4

REPORT INFORMATION
  Report Type: Report from Study
  Country: GB (occurrence: GB)
  Receive Date: 20230906
  Receipt Date: 20231208
  Transmission Date: 20240110
  Serious: Yes (Disabling)
  Sender: FDA-Public Use
  Company Number: GB-IPSEN Group, Research and Development-2023-20718

PATIENT
  Sex: Female

DRUGS (1)
  1. PALOVAROTENE [Suspect]
     Active Substance: PALOVAROTENE
     Indication: Fibrodysplasia ossificans progressiva
     Dosage: 5 MG TO 20 MG
     Route: 048
     Dates: start: 2015, end: 202108

REACTIONS (8)
  - Bone density decreased [Not Recovered/Not Resolved]
  - Skin exfoliation [Not Recovered/Not Resolved]
  - Rash papular [Not Recovered/Not Resolved]
  - Pruritus [Not Recovered/Not Resolved]
  - Condition aggravated [Not Recovered/Not Resolved]
  - Bedridden [Not Recovered/Not Resolved]
  - Ingrowing nail [Recovered/Resolved]
  - Alopecia [Unknown]
